FAERS Safety Report 7017625-X (Version None)
Quarter: 2010Q3

REPORT INFORMATION
  Report Type: 
  Country: None (occurrence: None)
  Receive Date: 20100928
  Receipt Date: 20100916
  Transmission Date: 20110219
  Serious: Yes (Hospitalization, Other)
  Sender: FDA-Public Use
  Company Number: US-CELGENEUS-163-21880-10080535

PATIENT
  Sex: Female

DRUGS (11)
  1. REVLIMID [Suspect]
     Indication: MULTIPLE MYELOMA
     Route: 048
     Dates: start: 20100703, end: 20100722
  2. REVLIMID [Suspect]
     Route: 048
     Dates: start: 20100805
  3. LISINOPRIL [Concomitant]
     Indication: HYPERTENSION
     Route: 065
  4. DEXAMETHASONE [Concomitant]
     Route: 065
     Dates: start: 20100703
  5. ASPIRIN [Concomitant]
     Route: 048
     Dates: start: 20100703
  6. ZOMETA [Concomitant]
     Route: 051
     Dates: start: 20100624
  7. TRAMADOL [Concomitant]
     Indication: PAIN MANAGEMENT
     Route: 065
     Dates: start: 20100617
  8. OSCAL [Concomitant]
     Indication: PRODUCT USED FOR UNKNOWN INDICATION
     Dosage: 500/200
     Route: 065
  9. REGLAN [Concomitant]
     Indication: NAUSEA
     Route: 048
     Dates: start: 20100722
  10. REGLAN [Concomitant]
     Indication: VOMITING
  11. ALENDRONATE SODIUM [Concomitant]
     Indication: PRODUCT USED FOR UNKNOWN INDICATION
     Route: 065

REACTIONS (2)
  - COLITIS [None]
  - DECREASED APPETITE [None]
